FAERS Safety Report 18997531 (Version 1)
Quarter: 2021Q1

REPORT INFORMATION
  Report Type: Spontaneous
  Country: US (occurrence: US)
  Receive Date: 20210311
  Receipt Date: 20210311
  Transmission Date: 20210420
  Serious: Yes (Other)
  Sender: FDA-Public Use
  Company Number: US-INDIVIOR EUROPE LIMITED-INDV-128758-2021

PATIENT

DRUGS (2)
  1. SUBOXONE [Suspect]
     Active Substance: BUPRENORPHINE HYDROCHLORIDE\NALOXONE HYDROCHLORIDE
     Indication: PRODUCT USED FOR UNKNOWN INDICATION
     Dosage: UNK
     Route: 065
     Dates: start: 2012
  2. DR. REDDY^S FILM (BUPRENORPHINE\NALOXONE) [Suspect]
     Active Substance: BUPRENORPHINE HYDROCHLORIDE\NALOXONE HYDROCHLORIDE
     Indication: PRODUCT USED FOR UNKNOWN INDICATION
     Dosage: 8 MILLIGRAM, UNK
     Route: 065

REACTIONS (7)
  - Rash [Unknown]
  - Cerebrovascular accident [Unknown]
  - Headache [Unknown]
  - Flushing [Unknown]
  - Urticaria [Unknown]
  - Wrong technique in product usage process [Unknown]
  - Gait disturbance [Unknown]
